FAERS Safety Report 21086484 (Version 2)
Quarter: 2022Q3

REPORT INFORMATION
  Report Type: Report from Study
  Country: MX (occurrence: MX)
  Receive Date: 20220715
  Receipt Date: 20220801
  Transmission Date: 20221027
  Serious: Yes (Other)
  Sender: FDA-Public Use
  Company Number: MX-NOVARTISPH-NVSC2022MX159669

PATIENT
  Age: 89 Year
  Sex: Female
  Weight: 56 kg

DRUGS (2)
  1. ENTRESTO [Suspect]
     Active Substance: SACUBITRIL\VALSARTAN
     Indication: Cardiac discomfort
     Dosage: 1 DOSAGE FORM, QD, IN THE MORNING
     Route: 048
     Dates: start: 20220620, end: 20220704
  2. FLUTICASONE [Concomitant]
     Active Substance: FLUTICASONE
     Indication: Chronic obstructive pulmonary disease
     Dosage: UNK, SPRAY
     Route: 055

REACTIONS (3)
  - Diabetes mellitus [Not Recovered/Not Resolved]
  - General physical health deterioration [Unknown]
  - Off label use [Recovered/Resolved]

NARRATIVE: CASE EVENT DATE: 20220620
